FAERS Safety Report 8793447 (Version 2)
Quarter: 2013Q1

REPORT INFORMATION
  Report Type: Spontaneous
  Country: AR (occurrence: AR)
  Receive Date: 20120918
  Receipt Date: 20130206
  Transmission Date: 20140127
  Serious: Yes (Hospitalization, Other)
  Sender: FDA-Public Use
  Company Number: PHHY2012AR080338

PATIENT
  Sex: Female

DRUGS (4)
  1. ONBREZ [Suspect]
     Indication: CHRONIC OBSTRUCTIVE PULMONARY DISEASE
     Dosage: 150 UG, QD
     Dates: start: 201203, end: 20120822
  2. ONBREZ [Suspect]
     Indication: RESPIRATORY FAILURE
     Dosage: UNK
  3. ONBREZ [Suspect]
     Indication: INCREASED BRONCHIAL SECRETION
  4. ANTICOAGULANTS [Concomitant]

REACTIONS (5)
  - Femur fracture [Recovering/Resolving]
  - Fall [Recovering/Resolving]
  - Thrombosis [Recovering/Resolving]
  - Infection [Recovering/Resolving]
  - Decubitus ulcer [Not Recovered/Not Resolved]
